FAERS Safety Report 4443064-1 (Version None)
Quarter: 2004Q3

REPORT INFORMATION
  Report Type: 
  Country: None (occurrence: None)
  Receive Date: 20040903
  Receipt Date: 20040601
  Transmission Date: 20050211
  Serious: Yes (Other)
  Sender: FDA-Public Use
  Company Number: 2004UW11325

PATIENT
  Age: 63 Year
  Sex: Male
  Weight: 68.0396 kg

DRUGS (9)
  1. CRESTOR [Suspect]
     Indication: BLOOD CHOLESTEROL INCREASED
     Dosage: 10MG QD PO
     Route: 048
     Dates: start: 20040514
  2. ASPIRIN [Concomitant]
  3. PLAVIX [Concomitant]
  4. ATENOLO [Concomitant]
  5. COZAAR [Concomitant]
  6. HYDROCHOROTHIAZIDE [Concomitant]
  7. VITAMINS NOS [Concomitant]
  8. ALUMINUM HYDROXIDE AND MAGNESIUM TRISILICATE [Concomitant]
  9. PROTONIX [Concomitant]

REACTIONS (2)
  - GAIT DISTURBANCE [None]
  - PAIN [None]
